FAERS Safety Report 26105856 (Version 1)
Quarter: 2025Q4

REPORT INFORMATION
  Report Type: Report from Study
  Country: US (occurrence: US)
  Receive Date: 20251201
  Receipt Date: 20251201
  Transmission Date: 20260118
  Serious: Yes (Death)
  Sender: ROCHE
  Company Number: US-ROCHE-10000443000

PATIENT
  Age: 73 Year
  Sex: Male

DRUGS (5)
  1. ESBRIET [Suspect]
     Active Substance: PIRFENIDONE
     Indication: Interstitial lung disease
     Dosage: TAKE 1 TABLET BY MOUTH 3 TIMES A DAY WITH MEALS
     Route: 048
  2. ESBRIET [Suspect]
     Active Substance: PIRFENIDONE
     Route: 065
  3. ESBRIET [Suspect]
     Active Substance: PIRFENIDONE
     Dosage: 267 MG ORAL THRICE A DAY X 7 DAYS THEN 534 MG ORAL THRICE A DAY X 7 DAYS THEN 801 MG ORAL THRICE A D
     Route: 048
  4. ALBUTEROL SULFATE [Concomitant]
     Active Substance: ALBUTEROL SULFATE
     Dosage: INHALE 2 PUFF BY INHALATION ROUTE EVERY 4-6 HOURS AS NEEDED
     Dates: start: 20210720
  5. PREDNISONE [Concomitant]
     Active Substance: PREDNISONE
     Dosage: TWO TAB DAILY FOR 10 DAYS THEN 1 TAB DAILY THERE AFTER
     Dates: start: 20230530

REACTIONS (3)
  - Death [Fatal]
  - Back pain [Unknown]
  - Obstructive sleep apnoea syndrome [Unknown]

NARRATIVE: CASE EVENT DATE: 20110828
